FAERS Safety Report 17130403 (Version 1)
Quarter: 2019Q4

REPORT INFORMATION
  Report Type: Spontaneous
  Country: US (occurrence: US)
  Receive Date: 20191209
  Receipt Date: 20191209
  Transmission Date: 20200122
  Serious: Yes (Hospitalization)
  Sender: FDA-Public Use
  Company Number: US-ASTRAZENECA-2019SF76079

PATIENT
  Sex: Female

DRUGS (8)
  1. LANSOPRAZOLE. [Concomitant]
     Active Substance: LANSOPRAZOLE
  2. SYNAGIS [Suspect]
     Active Substance: PALIVIZUMAB
     Route: 030
     Dates: start: 20181106
  3. SYNAGIS [Suspect]
     Active Substance: PALIVIZUMAB
     Route: 030
     Dates: start: 20181106
  4. DIAZEPAM. [Concomitant]
     Active Substance: DIAZEPAM
  5. RANITIDINE. [Concomitant]
     Active Substance: RANITIDINE
  6. METHADONE [Concomitant]
     Active Substance: METHADONE HYDROCHLORIDE
  7. CLONIDINE. [Concomitant]
     Active Substance: CLONIDINE
  8. NITROFURANTN [Concomitant]
     Active Substance: NITROFURANTOIN

REACTIONS (3)
  - Bronchiolitis [Unknown]
  - Corona virus infection [Unknown]
  - Pneumonia [Unknown]
